FAERS Safety Report 8029186-7 (Version None)
Quarter: 2012Q1

REPORT INFORMATION
  Report Type: 
  Country: None (occurrence: None)
  Receive Date: 20120106
  Receipt Date: 20120103
  Transmission Date: 20120608
  Serious: Yes (Other)
  Sender: FDA-Public Use
  Company Number: PHHY2011US14478

PATIENT
  Sex: Female

DRUGS (6)
  1. WELCHOL [Concomitant]
  2. PLENDIL [Concomitant]
  3. MOBIC [Concomitant]
  4. RECLAST [Suspect]
     Dosage: 5MG/100ML, 1 X YEAR
     Route: 042
     Dates: start: 20091201
  5. BENAZEPRIL HYDROCHLORIDE [Concomitant]
  6. RECLAST [Suspect]
     Dosage: 5MG/100ML, 1 X YEAR
     Route: 042
     Dates: start: 20101201

REACTIONS (2)
  - SPINAL FRACTURE [None]
  - PAIN IN JAW [None]
